FAERS Safety Report 8250652-3 (Version None)
Quarter: 2012Q2

REPORT INFORMATION
  Report Type: 
  Country: None (occurrence: None)
  Receive Date: 20120402
  Receipt Date: 20120319
  Transmission Date: 20120825
  Serious: Yes (Death, Other)
  Sender: FDA-Public Use
  Company Number: JP-ROCHE-1051683

PATIENT
  Sex: Male
  Weight: 58 kg

DRUGS (5)
  1. FLUOROURACIL [Suspect]
     Indication: COLORECTAL CANCER RECURRENT
     Route: 040
     Dates: start: 20110706, end: 20110907
  2. OXALIPLATIN [Suspect]
     Indication: COLORECTAL CANCER RECURRENT
     Route: 041
     Dates: start: 20110706, end: 20110907
  3. AVASTIN [Suspect]
     Indication: COLORECTAL CANCER RECURRENT
     Route: 041
     Dates: start: 20110720, end: 20110907
  4. FLUOROURACIL [Suspect]
     Route: 041
     Dates: start: 20110706, end: 20110909
  5. LEVOLEUCOVORIN CALCIUM [Suspect]
     Indication: COLORECTAL CANCER RECURRENT
     Dosage: DOSAGE IS UNCERTAIN.
     Route: 041
     Dates: start: 20110706

REACTIONS (3)
  - INTERSTITIAL LUNG DISEASE [None]
  - PLEURAL EFFUSION [None]
  - ANAL FISTULA [None]
